FAERS Safety Report 18841843 (Version 2)
Quarter: 2021Q2

REPORT INFORMATION
  Report Type: Spontaneous
  Country: JP (occurrence: JP)
  Receive Date: 20210203
  Receipt Date: 20210507
  Transmission Date: 20210717
  Serious: Yes (Death)
  Sender: FDA-Public Use
  Company Number: JP-BRISTOL-MYERS SQUIBB COMPANY-BMS-2021-007338

PATIENT
  Age: 80 Year
  Sex: Male

DRUGS (1)
  1. OPDIVO [Suspect]
     Active Substance: NIVOLUMAB
     Indication: OESOPHAGEAL CARCINOMA
     Dosage: 240 MILLIGRAM
     Route: 041
     Dates: start: 20200402

REACTIONS (2)
  - Hepatic function abnormal [Fatal]
  - Euthyroid sick syndrome [Unknown]

NARRATIVE: CASE EVENT DATE: 20200402
